FAERS Safety Report 16280946 (Version 1)
Quarter: 2019Q2

REPORT INFORMATION
  Report Type: Spontaneous
  Country: US (occurrence: US)
  Receive Date: 20190507
  Receipt Date: 20190507
  Transmission Date: 20190711
  Serious: Yes (Hospitalization, Other)
  Sender: FDA-Public Use
  Company Number: US-HETERO CORPORATE-HET2019US00561

PATIENT
  Age: 55 Year
  Sex: Male

DRUGS (6)
  1. RITONAVIR. [Suspect]
     Active Substance: RITONAVIR
     Indication: HIV INFECTION
     Dosage: UNK
     Route: 065
  2. MARAVIROC [Suspect]
     Active Substance: MARAVIROC
     Indication: HIV INFECTION
     Dosage: UNK
     Route: 065
  3. BUDESONIDE. [Concomitant]
     Active Substance: BUDESONIDE
     Indication: PRODUCT USED FOR UNKNOWN INDICATION
     Dosage: UNK
     Route: 065
  4. DARUNAVIR [Suspect]
     Active Substance: DARUNAVIR
     Indication: HIV INFECTION
     Dosage: UNK
     Route: 065
  5. RALTEGRAVIR. [Suspect]
     Active Substance: RALTEGRAVIR
     Indication: HIV INFECTION
     Dosage: UNK
     Route: 065
  6. SALMETEROL/FLUTICASON ORION [Concomitant]
     Indication: PRODUCT USED FOR UNKNOWN INDICATION
     Dosage: UNK
     Route: 065

REACTIONS (6)
  - Drug interaction [Unknown]
  - Sinusitis [Unknown]
  - Adrenal suppression [Unknown]
  - Cellulitis [Unknown]
  - Cushing^s syndrome [Recovering/Resolving]
  - Oral candidiasis [Unknown]
